FAERS Safety Report 7183117-0 (Version None)
Quarter: 2010Q4

REPORT INFORMATION
  Report Type: 
  Country: None (occurrence: None)
  Receive Date: 20101210
  Receipt Date: 20101123
  Transmission Date: 20110411
  Serious: Yes (Hospitalization)
  Sender: FDA-Public Use
  Company Number: GER/UKI/10/0016733

PATIENT
  Age: 75 Year
  Sex: Male

DRUGS (7)
  1. AMLODIPINE [Suspect]
     Indication: HYPERTENSION
     Dosage: 5 MG, 1 IN 1 D, ORAL
     Route: 048
     Dates: start: 20021015
  2. HYZAAR [Suspect]
     Indication: HYPERTENSION
     Dosage: 62.5 MG, ORAL
     Route: 048
     Dates: start: 20020301
  3. PLACEBO [Suspect]
     Indication: PROSTATE CANCER
     Dates: start: 20041117, end: 20081117
  4. ISOSORBIDE DINITRATE [Suspect]
     Indication: ANGINA PECTORIS
     Dosage: 120 MG, 1 IN 1 D, ORAL
     Route: 048
     Dates: start: 20050211
  5. NEBIVOLOL HCL [Suspect]
     Indication: HYPERTENSION
     Dosage: 5 MG, 1 IN 1 D, ORAL
     Route: 048
     Dates: start: 20040413
  6. PIOGLITAZONE [Suspect]
     Indication: TYPE 2 DIABETES MELLITUS
     Dosage: 30 MG, ORAL
     Route: 048
     Dates: start: 20081104
  7. ATORVASTATIN CALCIUM [Concomitant]

REACTIONS (3)
  - ANGINA PECTORIS [None]
  - LOSS OF CONSCIOUSNESS [None]
  - MYOCARDIAL INFARCTION [None]
